FAERS Safety Report 5218107-8 (Version None)
Quarter: 2007Q1

REPORT INFORMATION
  Report Type: 
  Country: None (occurrence: None)
  Receive Date: 20061130
  Receipt Date: 20060516
  Transmission Date: 20070707
  Serious: Yes (Disabling)
  Sender: FDA-Public Use
  Company Number: US200605003923

PATIENT
  Age: 33 Year
  Sex: Male

DRUGS (2)
  1. ZYPREXA [Suspect]
     Indication: ANXIETY
     Dosage: 10 MG, DAILY (1/D)
     Dates: start: 20051101, end: 20060227
  2. LEXAPRO /USA/(ESCITALOPRAM) [Concomitant]

REACTIONS (11)
  - AGITATION [None]
  - ASTHENIA [None]
  - FATIGUE [None]
  - HERPES ZOSTER [None]
  - INFLUENZA LIKE ILLNESS [None]
  - INSOMNIA [None]
  - IRRITABILITY [None]
  - PAIN [None]
  - SENSORY DISTURBANCE [None]
  - TACHYPHRENIA [None]
  - VISUAL DISTURBANCE [None]
